FAERS Safety Report 17806515 (Version 1)
Quarter: 2020Q2

REPORT INFORMATION
  Report Type: Spontaneous
  Country: US (occurrence: US)
  Receive Date: 20200520
  Receipt Date: 20200520
  Transmission Date: 20200714
  Serious: No
  Sender: FDA-Public Use
  Company Number: US-MYLANLABS-2020M1044780

PATIENT
  Sex: Female

DRUGS (1)
  1. ROWASA [Suspect]
     Active Substance: MESALAMINE
     Indication: COLITIS ULCERATIVE
     Dosage: 4 UNK, QD
     Route: 054

REACTIONS (2)
  - Product colour issue [Unknown]
  - Faeces discoloured [Not Recovered/Not Resolved]
